FAERS Safety Report 10300867 (Version 1)
Quarter: 2014Q3

REPORT INFORMATION
  Report Type: Spontaneous
  Country: CA (occurrence: CA)
  Receive Date: 20140714
  Receipt Date: 20140714
  Transmission Date: 20150326
  Serious: Yes (Other)
  Sender: FDA-Public Use
  Company Number: CA-MERCK-1407CAN004750

PATIENT
  Sex: Female

DRUGS (1)
  1. ZOLINZA [Suspect]
     Active Substance: VORINOSTAT
     Indication: PLEURAL MESOTHELIOMA MALIGNANT
     Dosage: 100 MICROGRAM, QD
     Route: 048
     Dates: start: 20140403, end: 2014

REACTIONS (1)
  - Pleural mesothelioma malignant [Unknown]

NARRATIVE: CASE EVENT DATE: 2014
